FAERS Safety Report 11837356 (Version 1)
Quarter: 2015Q4

REPORT INFORMATION
  Report Type: Spontaneous
  Country: US (occurrence: US)
  Receive Date: 20151215
  Receipt Date: 20151215
  Transmission Date: 20160305
  Serious: Yes (Death)
  Sender: FDA-Public Use
  Company Number: US-INSYS THERAPEUTICS, INC-INS201512-000537

PATIENT
  Age: 40 Year
  Sex: Female

DRUGS (4)
  1. ALPRAZOLAM. [Suspect]
     Active Substance: ALPRAZOLAM
  2. METHADONE [Suspect]
     Active Substance: METHADONE HYDROCHLORIDE
  3. HEROIN [Suspect]
     Active Substance: DIACETYLMORPHINE
  4. FENTANYL. [Suspect]
     Active Substance: FENTANYL

REACTIONS (1)
  - Toxicity to various agents [Fatal]
